FAERS Safety Report 5398235-7 (Version None)
Quarter: 2007Q3

REPORT INFORMATION
  Report Type: 
  Country: None (occurrence: None)
  Receive Date: 20070726
  Receipt Date: 20070603
  Transmission Date: 20080115
  Serious: Yes (Other)
  Sender: FDA-Public Use
  Company Number: US-PURDUE-USA_2007_0028479

PATIENT
  Sex: Female

DRUGS (1)
  1. OXYCONTIN [Suspect]
     Indication: SURGERY
     Dosage: UNK MG, UNK
     Route: 048
     Dates: start: 20000420, end: 20000501

REACTIONS (7)
  - ANXIETY [None]
  - DEPRESSION [None]
  - FATIGUE [None]
  - GASTROINTESTINAL DISORDER [None]
  - GASTROINTESTINAL PAIN [None]
  - INTESTINAL FUNCTIONAL DISORDER [None]
  - IRRITABLE BOWEL SYNDROME [None]
